FAERS Safety Report 4953269-9 (Version None)
Quarter: 2006Q1

REPORT INFORMATION
  Report Type: 
  Country: None (occurrence: None)
  Receive Date: 20060324
  Receipt Date: 20060119
  Transmission Date: 20060701
  Serious: Yes (Hospitalization, Other)
  Sender: FDA-Public Use
  Company Number: US-MERCK-0601USA02474

PATIENT
  Age: 56 Year
  Sex: Female
  Weight: 89 kg

DRUGS (7)
  1. VYTORIN [Suspect]
     Indication: HYPERLIPIDAEMIA
     Route: 048
     Dates: start: 20050930, end: 20060103
  2. CARBAMAZEPINE [Concomitant]
     Indication: POST-TRAUMATIC EPILEPSY
     Route: 048
     Dates: start: 19860101
  3. DICLOFENAC [Concomitant]
     Indication: ARTHRITIS
     Route: 048
     Dates: start: 20050501, end: 20060104
  4. MAXZIDE [Suspect]
     Indication: HYPERTENSION
     Route: 048
     Dates: start: 20050901, end: 20060104
  5. NEURONTIN [Concomitant]
     Indication: NEURALGIA
     Route: 048
     Dates: start: 20050101, end: 20060104
  6. NEURONTIN [Concomitant]
     Route: 048
     Dates: start: 20060104
  7. PLAVIX [Suspect]
     Indication: CEREBROVASCULAR DISORDER
     Route: 048
     Dates: start: 20051001

REACTIONS (6)
  - ASTHENIA [None]
  - BALANCE DISORDER [None]
  - DEHYDRATION [None]
  - RENAL FAILURE ACUTE [None]
  - SPEECH DISORDER [None]
  - URINARY TRACT INFECTION [None]
